FAERS Safety Report 5666784-X (Version None)
Quarter: 2008Q1

REPORT INFORMATION
  Report Type: 
  Country: None (occurrence: None)
  Receive Date: 20080315
  Receipt Date: 20071226
  Transmission Date: 20080703
  Serious: No
  Sender: FDA-Public Use
  Company Number: US-ABBOTT-08P-163-0431735-00

PATIENT
  Sex: Female
  Weight: 109.1 kg

DRUGS (1)
  1. HUMIRA [Suspect]
     Indication: RHEUMATOID ARTHRITIS
     Dates: start: 20061001, end: 20071217

REACTIONS (2)
  - NASOPHARYNGITIS [None]
  - RHEUMATOID ARTHRITIS [None]
